FAERS Safety Report 7341922-1 (Version None)
Quarter: 2011Q1

REPORT INFORMATION
  Report Type: 
  Country: None (occurrence: None)
  Receive Date: 20110309
  Receipt Date: 20110211
  Transmission Date: 20110831
  Serious: No
  Sender: FDA-Public Use
  Company Number: US-B.I. PHARMACEUTICALS,INC./RIDGEFIELD-2011-BP-05912BP

PATIENT
  Sex: Female

DRUGS (5)
  1. RYTHMOL [Concomitant]
     Indication: ATRIAL FIBRILLATION
  2. NEXIUM [Concomitant]
     Indication: GASTROOESOPHAGEAL REFLUX DISEASE
  3. PRADAXA [Suspect]
     Indication: ATRIAL FIBRILLATION
     Dosage: 300 MG
     Route: 048
     Dates: start: 20110101
  4. TOPROL-XL [Concomitant]
     Indication: ATRIAL FIBRILLATION
  5. CRESTOR [Concomitant]
     Indication: PROPHYLAXIS

REACTIONS (1)
  - CHEST PAIN [None]
